FAERS Safety Report 16845311 (Version 1)
Quarter: 2019Q3

REPORT INFORMATION
  Report Type: Report from Study
  Country: DE (occurrence: DE)
  Receive Date: 20190924
  Receipt Date: 20190924
  Transmission Date: 20191005
  Serious: Yes (Death)
  Sender: FDA-Public Use
  Company Number: PHHO2019DE009425

PATIENT
  Age: 80 Year
  Sex: Male
  Weight: 81 kg

DRUGS (4)
  1. AZACITIDINE. [Concomitant]
     Active Substance: AZACITIDINE
     Indication: ACUTE MYELOID LEUKAEMIA
     Dosage: 75 MG/M2
     Route: 065
     Dates: start: 20190819, end: 20190825
  2. BLINDED NO TREATMENT RECEIVED [Suspect]
     Active Substance: INVESTIGATIONAL PRODUCT
     Indication: ACUTE MYELOID LEUKAEMIA
     Dosage: 200 MG/DL
     Route: 048
     Dates: start: 20190830, end: 20190902
  3. BLINDED PLACEBO [Suspect]
     Active Substance: INVESTIGATIONAL PRODUCT
     Indication: ACUTE MYELOID LEUKAEMIA
     Dosage: 200 MG/DL
     Route: 048
     Dates: start: 20190830, end: 20190902
  4. BLINDED ELTROMBOPAG [Suspect]
     Active Substance: ELTROMBOPAG
     Indication: ACUTE MYELOID LEUKAEMIA
     Dosage: 200 MG/DL
     Route: 048
     Dates: start: 20190830, end: 20190902

REACTIONS (1)
  - Death [Fatal]

NARRATIVE: CASE EVENT DATE: 20190918
